FAERS Safety Report 25940719 (Version 1)
Quarter: 2025Q4

REPORT INFORMATION
  Report Type: Spontaneous
  Country: US (occurrence: None)
  Receive Date: 20251017
  Receipt Date: 20251017
  Transmission Date: 20260118
  Serious: Yes (unspecified)
  Sender: FDA-CTU
  Company Number: None

PATIENT
  Age: 18 Year
  Sex: Male

DRUGS (1)
  1. XDEMVY [Suspect]
     Active Substance: LOTILANER
     Dates: start: 20251009, end: 20251011

REACTIONS (2)
  - Eye pain [None]
  - Instillation site pain [None]

NARRATIVE: CASE EVENT DATE: 20251009
